FAERS Safety Report 4768310-6 (Version None)
Quarter: 2005Q3

REPORT INFORMATION
  Report Type: 
  Country: None (occurrence: None)
  Receive Date: 20050906
  Receipt Date: 20050701
  Transmission Date: 20060218
  Serious: No
  Sender: FDA-Public Use
  Company Number: 2005-BP-11157BP

PATIENT
  Age: 73 Year
  Sex: Female

DRUGS (8)
  1. SPIRIVA [Suspect]
     Indication: CHRONIC OBSTRUCTIVE PULMONARY DISEASE
     Dosage: 18 MCG (18 MCG, QD), IH
     Route: 055
     Dates: start: 20050519
  2. METHOTREXATE [Concomitant]
  3. FOLIC ACID [Concomitant]
  4. RELAFEN [Concomitant]
  5. FOSAMAX [Concomitant]
  6. TRAMADOL HCL [Concomitant]
  7. LIPITOR [Concomitant]
  8. SYNTHROID [Concomitant]

REACTIONS (1)
  - VISUAL ACUITY REDUCED [None]
